FAERS Safety Report 20999361 (Version 2)
Quarter: 2022Q3

REPORT INFORMATION
  Report Type: Spontaneous
  Country: US (occurrence: US)
  Receive Date: 20220623
  Receipt Date: 20220708
  Transmission Date: 20221026
  Serious: Yes (Life-Threatening, Hospitalization)
  Sender: FDA-Public Use
  Company Number: US-TEVA-2022-US-2047629

PATIENT
  Age: 9 Day
  Sex: Female

DRUGS (9)
  1. LEVETIRACETAM [Suspect]
     Active Substance: LEVETIRACETAM
     Indication: Neonatal seizure
     Route: 065
  2. PHENOBARBITAL [Suspect]
     Active Substance: PHENOBARBITAL
     Indication: Neonatal seizure
     Dosage: BOLUS
     Route: 065
  3. PYRIDOXINE [Suspect]
     Active Substance: PYRIDOXINE
     Indication: Neonatal seizure
     Route: 048
  4. SODIUM CHLORIDE [Concomitant]
     Active Substance: SODIUM CHLORIDE
     Indication: Product used for unknown indication
     Route: 065
  5. AMPICILLIN [Concomitant]
     Active Substance: AMPICILLIN
     Indication: Product used for unknown indication
     Route: 065
  6. GENTAMICIN [Concomitant]
     Active Substance: GENTAMICIN
     Indication: Product used for unknown indication
     Route: 065
  7. ACYCLOVIR [Concomitant]
     Active Substance: ACYCLOVIR
     Indication: Product used for unknown indication
     Route: 065
  8. FENTANYL [Concomitant]
     Active Substance: FENTANYL
     Indication: Product used for unknown indication
     Route: 065
  9. MIDAZOLAM [Concomitant]
     Active Substance: MIDAZOLAM
     Indication: Product used for unknown indication
     Route: 065

REACTIONS (2)
  - Drug ineffective [Unknown]
  - Epilepsy [Unknown]
